FAERS Safety Report 20908233 (Version 2)
Quarter: 2022Q2

REPORT INFORMATION
  Report Type: Spontaneous
  Country: US (occurrence: US)
  Receive Date: 20220602
  Receipt Date: 20220609
  Transmission Date: 20220721
  Serious: Yes (Hospitalization, Other)
  Sender: FDA-Public Use
  Company Number: US-BEH-2022145961

PATIENT
  Sex: Female

DRUGS (2)
  1. HIZENTRA [Suspect]
     Active Substance: HUMAN IMMUNOGLOBULIN G
     Indication: Nervous system disorder
     Dosage: 35 GRAM, BIW
     Route: 058
     Dates: start: 202106
  2. HIZENTRA [Suspect]
     Active Substance: HUMAN IMMUNOGLOBULIN G
     Indication: Mast cell activation syndrome

REACTIONS (5)
  - COVID-19 [Unknown]
  - Seizure [Unknown]
  - Behaviour disorder [Unknown]
  - No adverse event [Unknown]
  - Off label use [Unknown]
